FAERS Safety Report 4743618-9 (Version None)
Quarter: 2005Q3

REPORT INFORMATION
  Report Type: 
  Country: None (occurrence: None)
  Receive Date: 20050812
  Receipt Date: 20050526
  Transmission Date: 20060218
  Serious: Yes (Hospitalization)
  Sender: FDA-Public Use
  Company Number: US-AMGEN-US135781

PATIENT
  Sex: Female

DRUGS (3)
  1. ENBREL [Suspect]
     Indication: PSORIASIS
     Dates: start: 20040716, end: 20050303
  2. AMARYL [Concomitant]
  3. TYLENOL (CAPLET) [Concomitant]

REACTIONS (4)
  - GRANULOMA [None]
  - PNEUMONIA [None]
  - RETINAL VASCULITIS [None]
  - VIRAL INFECTION [None]
